FAERS Safety Report 7560844-4 (Version None)
Quarter: 2011Q2

REPORT INFORMATION
  Report Type: 
  Country: None (occurrence: None)
  Receive Date: 20110621
  Receipt Date: 20100528
  Transmission Date: 20111010
  Serious: No
  Sender: FDA-Public Use
  Company Number: US-ASTRAZENECA-2010SE14968

PATIENT
  Age: 84 Year
  Sex: Female

DRUGS (3)
  1. ATACAND [Suspect]
     Indication: BLOOD PRESSURE
     Dosage: TOOK HALF 32 MG TABLET, ONCE
     Route: 048
  2. ASPIRIN [Concomitant]
  3. ATENOLOL [Suspect]
     Route: 065

REACTIONS (3)
  - DRUG DOSE OMISSION [None]
  - BLOOD PRESSURE INCREASED [None]
  - WRONG TECHNIQUE IN DRUG USAGE PROCESS [None]
